FAERS Safety Report 13913227 (Version 1)
Quarter: 2017Q3

REPORT INFORMATION
  Report Type: Spontaneous
  Country: US (occurrence: US)
  Receive Date: 20170828
  Receipt Date: 20170828
  Transmission Date: 20171127
  Serious: No
  Sender: FDA-Public Use
  Company Number: US-ROCHE-1124182

PATIENT
  Age: 17 Year
  Sex: Male

DRUGS (3)
  1. NUTROPIN AQ [Suspect]
     Active Substance: SOMATROPIN
     Indication: CYSTIC FIBROSIS
     Route: 065
     Dates: start: 1999
  2. TOBRAMYCIN. [Concomitant]
     Active Substance: TOBRAMYCIN
  3. NUTROPIN AQ [Suspect]
     Active Substance: SOMATROPIN
     Indication: GROWTH FAILURE

REACTIONS (3)
  - Cough [Unknown]
  - Nasal congestion [Unknown]
  - Productive cough [Unknown]

NARRATIVE: CASE EVENT DATE: 20000629
